FAERS Safety Report 5730368-5 (Version None)
Quarter: 2008Q2

REPORT INFORMATION
  Report Type: 
  Country: None (occurrence: None)
  Receive Date: 20080502
  Receipt Date: 20080423
  Transmission Date: 20081010
  Serious: Yes (Death)
  Sender: FDA-Public Use
  Company Number: A-CH2008-20338

PATIENT
  Age: 76 Year
  Sex: Male

DRUGS (7)
  1. TRACLEER [Suspect]
     Indication: PULMONARY HYPERTENSION
     Dosage: 125 MG, BID ORAL; 62.5 MG BID; ORAL
     Route: 048
     Dates: start: 20051123, end: 20051219
  2. TRACLEER [Suspect]
     Indication: PULMONARY HYPERTENSION
     Dosage: 125 MG, BID ORAL; 62.5 MG BID; ORAL
     Route: 048
     Dates: start: 20051220, end: 20071112
  3. MARCUMAR [Concomitant]
  4. MIRTAZAPINE [Concomitant]
  5. APO-TRAZODONE (TRAZODONE HYDROCHLORIDE) [Concomitant]
  6. FOLAVIT (FOLIC ACID) [Concomitant]
  7. SILDENAFIL CITRATE [Concomitant]

REACTIONS (1)
  - DEATH [None]
